FAERS Safety Report 9343141 (Version 2)
Quarter: 2013Q3

REPORT INFORMATION
  Report Type: Spontaneous
  Country: IT (occurrence: IT)
  Receive Date: 20130611
  Receipt Date: 20130711
  Transmission Date: 20140515
  Serious: Yes (Hospitalization, Other)
  Sender: FDA-Public Use
  Company Number: IT-PFIZER INC-2013161800

PATIENT
  Age: 72 Year
  Sex: Female

DRUGS (9)
  1. TRIATEC [Suspect]
     Indication: HYPERTENSION
     Dosage: 5 MG, DAILY
     Route: 048
     Dates: start: 20130406
  2. ALDACTONE [Suspect]
     Indication: CONGESTIVE CARDIOMYOPATHY
     Dosage: 25 MG, DAILY
     Route: 048
     Dates: start: 20130405, end: 20130409
  3. LANSOPRAZOLE [Concomitant]
     Dosage: UNK
  4. LASIX [Concomitant]
     Dosage: UNK
  5. XANAX [Concomitant]
     Dosage: UNK
  6. CARDIOASPIRIN [Concomitant]
     Dosage: UNK
  7. EUTIROX [Concomitant]
     Dosage: UNK
  8. LANOXIN [Concomitant]
     Dosage: UNK
  9. DILATREND [Concomitant]
     Dosage: UNK

REACTIONS (2)
  - Supraventricular tachycardia [Unknown]
  - Hyperkalaemia [Unknown]
